FAERS Safety Report 19686528 (Version 1)
Quarter: 2021Q3

REPORT INFORMATION
  Report Type: Other
  Country: TR (occurrence: TR)
  Receive Date: 20210811
  Receipt Date: 20210811
  Transmission Date: 20211014
  Serious: Yes (Death, Life-Threatening, Hospitalization, Other)
  Sender: FDA-Public Use
  Company Number: TR-EMD SERONO-9256833

PATIENT
  Age: 17 Year
  Sex: Male

DRUGS (1)
  1. METFORMIN HYDROCHLORIDE. [Suspect]
     Active Substance: METFORMIN HYDROCHLORIDE
     Indication: PRODUCT USED FOR UNKNOWN INDICATION
     Route: 048

REACTIONS (14)
  - Sepsis [Fatal]
  - Diabetic ketoacidosis [Unknown]
  - Cardiac arrest [Unknown]
  - Compartment syndrome [Unknown]
  - Intentional overdose [Unknown]
  - Multiple organ dysfunction syndrome [Unknown]
  - Prescription drug used without a prescription [Unknown]
  - Rhabdomyolysis [Unknown]
  - Metabolic acidosis [Unknown]
  - Hyperkalaemia [Unknown]
  - Leg amputation [Unknown]
  - Toxicity to various agents [Unknown]
  - Diabetic ketoacidotic hyperglycaemic coma [Unknown]
  - Lactic acidosis [Unknown]
